FAERS Safety Report 5579898-X (Version None)
Quarter: 2008Q1

REPORT INFORMATION
  Report Type: 
  Country: None (occurrence: None)
  Receive Date: 20080103
  Receipt Date: 20071227
  Transmission Date: 20080703
  Serious: Yes (Other)
  Sender: FDA-Public Use
  Company Number: US-JNJFOC-20071206312

PATIENT
  Sex: Female
  Weight: 47.63 kg

DRUGS (9)
  1. REMICADE [Suspect]
     Dosage: 8 DOSES
     Route: 042
  2. REMICADE [Suspect]
     Dosage: 8 DOSES
     Route: 042
  3. REMICADE [Suspect]
     Dosage: 8 DOSES
     Route: 042
  4. REMICADE [Suspect]
     Dosage: 8 DOSES
     Route: 042
  5. REMICADE [Suspect]
     Dosage: 8 DOSES
     Route: 042
  6. REMICADE [Suspect]
     Dosage: 8 DOSES
     Route: 042
  7. REMICADE [Suspect]
     Dosage: 8 DOSES
     Route: 042
  8. REMICADE [Suspect]
     Indication: ANKYLOSING SPONDYLITIS
     Dosage: 8 DOSES
     Route: 042
  9. ZANAFLEX [Concomitant]
     Indication: ANKYLOSING SPONDYLITIS

REACTIONS (1)
  - LYMPHOMA [None]
